FAERS Safety Report 5565152-9 (Version None)
Quarter: 2007Q4

REPORT INFORMATION
  Report Type: 
  Country: None (occurrence: None)
  Receive Date: 20071213
  Receipt Date: 20071213
  Transmission Date: 20080405
  Serious: Yes (Other)
  Sender: FDA-Public Use
  Company Number: None

PATIENT
  Age: 39 Year
  Sex: Female
  Weight: 56.6996 kg

DRUGS (3)
  1. CHANTIX [Suspect]
     Indication: SMOKING CESSATION THERAPY
     Dosage: 1 MG  TWICE DAILY  PO
     Route: 048
     Dates: start: 20070315, end: 20070801
  2. CHANTIX [Suspect]
     Indication: SMOKING CESSATION THERAPY
     Dosage: 1 MG  TWICE DAILY  PO
     Route: 048
     Dates: start: 20071204, end: 20071212
  3. EFFEXOR [Concomitant]

REACTIONS (6)
  - DEPRESSION [None]
  - FEELING ABNORMAL [None]
  - HYPERSOMNIA [None]
  - LETHARGY [None]
  - SIMILAR REACTION ON PREVIOUS EXPOSURE TO DRUG [None]
  - SOMNOLENCE [None]
